FAERS Safety Report 20682993 (Version 2)
Quarter: 2022Q2

REPORT INFORMATION
  Report Type: Spontaneous
  Country: US (occurrence: US)
  Receive Date: 20220407
  Receipt Date: 20220525
  Transmission Date: 20220721
  Serious: No
  Sender: FDA-Public Use
  Company Number: US-BRISTOL-MYERS SQUIBB COMPANY-2022-014703

PATIENT
  Age: 72 Year
  Sex: Male

DRUGS (2)
  1. REVLIMID [Suspect]
     Active Substance: LENALIDOMIDE
     Indication: Plasma cell myeloma
     Dosage: FREQUENCY: 1 CAPSULE DAILY IN THE EVENING ON DAYS 1,3,5,7,9,11,13 EVERY 21 DAYS
     Route: 048
     Dates: start: 20220214
  2. REVLIMID [Suspect]
     Active Substance: LENALIDOMIDE
     Dosage: FREQUENCY DAILY IN THE EVENING ON DAYS 1,3,5,7,9,11,13 EVERY 21 DAYS.
     Route: 048
     Dates: start: 202111

REACTIONS (2)
  - Rash [Unknown]
  - Rash [Unknown]
